FAERS Safety Report 16913926 (Version 4)
Quarter: 2020Q1

REPORT INFORMATION
  Report Type: Spontaneous
  Country: US (occurrence: US)
  Receive Date: 20191014
  Receipt Date: 20200124
  Transmission Date: 20200409
  Serious: Yes (Other)
  Sender: FDA-Public Use
  Company Number: US-PFIZER INC-2019434004

PATIENT
  Age: 57 Year
  Sex: Female
  Weight: 71.6 kg

DRUGS (27)
  1. ZOFRAN [Concomitant]
     Active Substance: ONDANSETRON HYDROCHLORIDE
     Dosage: 4 MG, AS NEEDED, (TAKE 1 TABLET BY MOUTH EVERY 6 HOURS AS NEEDED. )
     Route: 048
  2. SYNTHROID [Concomitant]
     Active Substance: LEVOTHYROXINE SODIUM
     Dosage: 75 UG, UNK, (TAKE 1 PILL 6 DAYS A WEEK AND 1.5 PILLS SUNDAY)
  3. RETIN-A [Concomitant]
     Active Substance: TRETINOIN
     Dosage: UNK UNK, DAILY, (APPLY 1 APPLICATION TO AFFECTED AREA DAILY AT BEDTIME)
  4. SYNALAR [Concomitant]
     Active Substance: FLUOCINOLONE ACETONIDE
     Dosage: UNK, (APPLY TO AFFECTED AREAS ON THE SCALP 3 DAYS PER WEEK)
  5. CLEOCIN [CLINDAMYCIN HYDROCHLORIDE] [Concomitant]
     Dosage: 1 %, DAILY, (APPLY TO ENTIRE SCALP ONCE DAILY )
  6. XELJANZ [Suspect]
     Active Substance: TOFACITINIB CITRATE
     Indication: ALOPECIA
     Dosage: 5 MG, 2X/DAY
     Route: 048
     Dates: start: 201404, end: 2015
  7. FLONASE [MOMETASONE FUROATE] [Concomitant]
     Active Substance: MOMETASONE FUROATE
     Dosage: 50 UG, 1X/DAY, (USE 1 SPRAY IN EACH NOSTRIL ONCE DAILY)
  8. COVARYX HS [Concomitant]
     Active Substance: ESTROGENS, ESTERIFIED\METHYLTESTOSTERONE
     Dosage: 1 DF, UNK
     Route: 048
  9. PREMARIN [Concomitant]
     Active Substance: ESTROGENS, CONJUGATED
     Dosage: 0.625 MG, DAILY, (TAKE 1 TABLET BY MOUTH ONCE DAILY)
     Route: 048
  10. LEVOTHYROXINE. [Concomitant]
     Active Substance: LEVOTHYROXINE
     Indication: THYROID DISORDER
     Dosage: UNK
  11. DELTASONE [Concomitant]
     Active Substance: PREDNISONE
     Dosage: 40 MG, 1X/DAY, (TAKE 2 TABS PO (ORAL) QD (ONCE A DAY) X 4 DAYS AND THEN 1 TAB PO QD X 5 DAYS )
     Route: 048
  12. ALDARA [Concomitant]
     Active Substance: IMIQUIMOD
     Indication: SKIN PAPILLOMA
     Dosage: UNK UNK, ALTERNATE DAY, (APPLY A THIN LAYER 3 TIMES PER WEEK (ON ALTERNATE DAYS) PRIOR TO BEDTIME)
  13. CETAPHIL GENTLE SKIN CLEANSER [CETYL ALCOHOL;PROPYLENE GLYCOL;SODIUM L [Concomitant]
  14. XELJANZ [Suspect]
     Active Substance: TOFACITINIB CITRATE
     Indication: ALOPECIA AREATA
     Dosage: 5 MG, 2X/DAY
     Route: 048
     Dates: start: 20150106
  15. PROAIR HFA [Concomitant]
     Active Substance: ALBUTEROL SULFATE
     Dosage: 90 UG, AS NEEDED, (INHALE 2 PUFFS AS INSTRUCTED EVERY 4 HOURS AS NEEDED)
     Route: 055
  16. DELTASONE [Concomitant]
     Active Substance: PREDNISONE
     Dosage: 20 MG, 1X/DAY, (TAKE 2 TABS PO (ORAL) QD (ONCE A DAY) X 4 DAYS AND THEN 1 TAB PO QD X 5 DAYS )
  17. ALLEGRA [Concomitant]
     Active Substance: FEXOFENADINE HYDROCHLORIDE
     Dosage: 180 MG, 1X/DAY
     Route: 048
  18. NIZORAL [Concomitant]
     Active Substance: KETOCONAZOLE
     Indication: RASH
     Dosage: 2 %, UNK
  19. ASTELIN [DIPROPHYLLINE] [Concomitant]
     Dosage: UNK UNK, AS NEEDED, (USE 1-2 SPRAYS IN EACH NOSTRIL TWICE DAILY AS NEEDED)
  20. XELJANZ [Suspect]
     Active Substance: TOFACITINIB CITRATE
     Indication: BASEDOW^S DISEASE
     Dosage: 5 MG, 2X/DAY
     Route: 048
     Dates: start: 2016, end: 2017
  21. XELJANZ [Suspect]
     Active Substance: TOFACITINIB CITRATE
     Indication: ALOPECIA UNIVERSALIS
     Dosage: 5 MG, 2X/DAY
     Route: 048
     Dates: start: 201910
  22. ZOVIRAX [Concomitant]
     Active Substance: ACYCLOVIR
     Dosage: 400 MG, 2X/DAY
     Route: 048
  23. VITAMIN D3 [Concomitant]
     Active Substance: CHOLECALCIFEROL
     Dosage: 5000 IU, DAILY
     Route: 048
  24. CHOLECALCIFEROL [Concomitant]
     Active Substance: CHOLECALCIFEROL
     Dosage: 5000 IU, DAILY
     Route: 048
  25. ASTEPRO [Concomitant]
     Active Substance: AZELASTINE HYDROCHLORIDE
     Dosage: UNK UNK, AS NEEDED, (USE 1-2 SPRAYS IN EACH NOSTRIL TWICE DAILY AS NEEDED)
  26. MOTRIN [Concomitant]
     Active Substance: IBUPROFEN
     Indication: PAIN
     Dosage: 600 MG, AS NEEDED, (TAKE 1 TABLET BY MOUTH EVERY 6 HOURS AS NEEDED FOR PAIN.)
     Route: 048
  27. VOLTAREN [Concomitant]
     Active Substance: DICLOFENAC SODIUM
     Dosage: 4 G, AS NEEDED, (APPLY 4 G TO AFFECTED AREA FOUR TIMES DAILY AS NEEDED)

REACTIONS (8)
  - Off label use [Unknown]
  - Weight increased [Unknown]
  - Hyperthyroidism [Recovered/Resolved]
  - Drug intolerance [Unknown]
  - Meniscus injury [Unknown]
  - Drug effective for unapproved indication [Unknown]
  - Palpitations [Recovered/Resolved]
  - Product use in unapproved indication [Unknown]

NARRATIVE: CASE EVENT DATE: 2016
